FAERS Safety Report 8851035 (Version 1)
Quarter: 2012Q4

REPORT INFORMATION
  Report Type: 
  Country: US (occurrence: US)
  Receive Date: 20121019
  Receipt Date: 20121019
  Transmission Date: 20130627
  Serious: No
  Sender: FDA-Public Use
  Company Number: US-PFIZER INC-2012260380

PATIENT

DRUGS (1)
  1. DILANTIN KAPSEAL [Suspect]
     Dosage: UNK

REACTIONS (2)
  - Drug level decreased [Unknown]
  - Neuralgia [Unknown]
